FAERS Safety Report 18198545 (Version 1)
Quarter: 2020Q3

REPORT INFORMATION
  Report Type: Spontaneous
  Country: US (occurrence: US)
  Receive Date: 20200826
  Receipt Date: 20200826
  Transmission Date: 20201103
  Serious: Yes (Other)
  Sender: FDA-Public Use
  Company Number: US-PFIZER INC-2015126387

PATIENT
  Age: 72 Year
  Sex: Male
  Weight: 90.7 kg

DRUGS (29)
  1. LYRICA [Suspect]
     Active Substance: PREGABALIN
     Indication: NEUROPATHY PERIPHERAL
     Dosage: 150 MG, 3X/DAY (1 IN AM, 1 IN AFTERNOON, 1 IN EVEING)
     Route: 048
  2. VITAMIN B COMPLEX [Concomitant]
     Active Substance: CYANOCOBALAMIN\DEXPANTHENOL\NIACINAMIDE\PYRIDOXINE HYDROCHLORIDE\RIBOFLAVIN 5^-PHOSPHATE SODIUM\THIAMINE HYDROCHLORIDE\VITAMIN B COMPLEX
     Dosage: 1 DF, 1X/DAY
  3. IRON [Concomitant]
     Active Substance: IRON
     Indication: SUPPLEMENTATION THERAPY
     Dosage: 65 MG, 1X/DAY, [1 (A.M.)]
  4. BETAMETHASONE DIPROPIONATE. [Concomitant]
     Active Substance: BETAMETHASONE DIPROPIONATE
     Indication: ECZEMA NUMMULAR
     Dosage: 45 G, AS NEEDED (2 (EACH DOSE)
  5. ZANTAC [Concomitant]
     Active Substance: RANITIDINE HYDROCHLORIDE
     Dosage: UNK
  6. ASA [Concomitant]
     Active Substance: ASPIRIN
     Dosage: 81 MG, UNK
  7. KRILL OIL [Concomitant]
     Active Substance: DIETARY SUPPLEMENT\KRILL OIL
     Dosage: UNK
  8. MAGNESIUM [Concomitant]
     Active Substance: MAGNESIUM
     Indication: MUSCLE SPASMS
     Dosage: 1000 MG, UNK (250MGX4 (2 IN A.M., 2 IN P.M.)
  9. NASACORT [Concomitant]
     Active Substance: TRIAMCINOLONE ACETONIDE
     Indication: SEASONAL ALLERGY
     Dosage: UNK UNK, AS NEEDED
  10. ZYRTEC [Concomitant]
     Active Substance: CETIRIZINE HYDROCHLORIDE
     Indication: PRURITUS
     Dosage: 10 MG, 2X/DAY, [2 (1 IN A.M., 1 IN P.M.)]
  11. ZYRTEC [Concomitant]
     Active Substance: CETIRIZINE HYDROCHLORIDE
     Indication: SKIN DISORDER
  12. CLOBETASOL PROPIONATE. [Concomitant]
     Active Substance: CLOBETASOL PROPIONATE
     Indication: ECZEMA NUMMULAR
     Dosage: 60 G,  AS NEEDED (AS NEEDED FOR OUTBREAK AREAS)
  13. OXYCODONE [Concomitant]
     Active Substance: OXYCODONE
     Indication: BACK PAIN
     Dosage: 60 MG, UNK (15MGX4 (1 IN A.M., 1 MID?DAY, 1EVENING, 1 LATE P.M.)
  14. OXYCODONE [Concomitant]
     Active Substance: OXYCODONE
     Dosage: 75 MG, DAILY, [15MG/5 (1 IN A.M., 3 MID?DAY, 1 LATE P.M.)]
  15. METHOCARBAMOL. [Concomitant]
     Active Substance: METHOCARBAMOL
     Dosage: 3500 MG, DAILY, [500MG/7 (2 IN A.M., 3 MID?DAY, 2 LATE P.M.)]
  16. LEVOTHYROXINE. [Concomitant]
     Active Substance: LEVOTHYROXINE
     Indication: THYROID DISORDER
     Dosage: 100 UG, WEEKLY, [1 (A.M.) ON SUNDAYS]
  17. BIOTIN [Concomitant]
     Active Substance: BIOTIN
     Dosage: 2500 UG, 1X/DAY, [1 (P.M.)]
  18. ZINC. [Concomitant]
     Active Substance: ZINC
     Indication: SKIN DISORDER
     Dosage: 50 MG, 1X/DAY, [1 (A.M.)]
  19. B?100 [Concomitant]
     Dosage: UNK
  20. ALEVE [Concomitant]
     Active Substance: NAPROXEN SODIUM
     Dosage: UNK
  21. METHOCARBAMOL. [Concomitant]
     Active Substance: METHOCARBAMOL
     Indication: BACK PAIN
     Dosage: 2500 MG, UNK (500MGX5 (2 IN A.M., 1 MID?DAY, 1EVENING, 2 LATE PM)
  22. SUDAFED [Concomitant]
     Active Substance: PSEUDOEPHEDRINE HYDROCHLORIDE
     Dosage: 1 DF, AS NEEDED, [1 (TABLET, AS NEEDED DURING HAY FEVER SEASON)]
  23. MAGNESIUM [Concomitant]
     Active Substance: MAGNESIUM
     Dosage: 500 MG, 2X/DAY, [250MG/4 (2 IN A.M., 2 IN P.M.)]
  24. CALCIUM WITH D3 [Concomitant]
     Indication: SUPPLEMENTATION THERAPY
     Dosage: 500 MG, 1X/DAY, [1 (P.M.)]
  25. VITAMIN B COMPLEX [Concomitant]
     Active Substance: CYANOCOBALAMIN\DEXPANTHENOL\NIACINAMIDE\PYRIDOXINE HYDROCHLORIDE\RIBOFLAVIN 5^-PHOSPHATE SODIUM\THIAMINE HYDROCHLORIDE\VITAMIN B COMPLEX
     Indication: SUPPLEMENTATION THERAPY
     Dosage: UNK, 2 (IN AM., 1 IN PM)
  26. BIOTIN [Concomitant]
     Active Substance: BIOTIN
     Indication: SUPPLEMENTATION THERAPY
     Dosage: 2500 MG, UNK (1 (P.M.)
  27. LEVOTHYROXINE. [Concomitant]
     Active Substance: LEVOTHYROXINE
     Dosage: 88 UG, UNK, [1 (A.M.) MONDAY ? SATURDAY]
  28. QUININE SULFATE. [Concomitant]
     Active Substance: QUININE SULFATE
     Indication: MUSCLE SPASMS
     Dosage: 300 MG, 1 (LATE P.M)
  29. SUDAFED [Concomitant]
     Active Substance: PSEUDOEPHEDRINE HYDROCHLORIDE
     Indication: SINUS CONGESTION
     Dosage: 60 MG,  AS NEEDED (30MGX2 (EACH DOSE)

REACTIONS (1)
  - Myocardial infarction [Unknown]
